FAERS Safety Report 11776206 (Version 3)
Quarter: 2017Q1

REPORT INFORMATION
  Report Type: Spontaneous
  Country: JP (occurrence: JP)
  Receive Date: 20151125
  Receipt Date: 20170216
  Transmission Date: 20170428
  Serious: Yes (Other)
  Sender: FDA-Public Use
  Company Number: JP-ROCHE-1666365

PATIENT
  Age: 84 Year
  Sex: Female

DRUGS (11)
  1. BLOPRESS [Concomitant]
     Active Substance: CANDESARTAN CILEXETIL
     Route: 048
  2. BONVIVA [Suspect]
     Active Substance: IBANDRONATE SODIUM
     Indication: OSTEOPOROSIS
     Dosage: DOSAGE IS UNCERTAIN.
     Route: 042
     Dates: start: 20140408
  3. NORVASC [Concomitant]
     Active Substance: AMLODIPINE BESYLATE
     Route: 048
  4. TAKEPRON [Concomitant]
     Active Substance: LANSOPRAZOLE
     Route: 048
  5. HEAVY MAGNESIUM OXIDE [Concomitant]
     Route: 048
  6. GLACTIV [Concomitant]
     Active Substance: SITAGLIPTIN
     Route: 048
  7. EDIROL [Concomitant]
     Active Substance: ELDECALCITOL
     Route: 048
  8. GASCON [Concomitant]
     Active Substance: DIMETHICONE
     Route: 048
  9. PANTETHINE [Concomitant]
     Active Substance: PANTETHINE
     Route: 048
  10. BUP-4 [Concomitant]
     Active Substance: PROPIVERINE
     Route: 048
  11. CEREKINON [Concomitant]
     Active Substance: TRIMEBUTINE
     Route: 048

REACTIONS (2)
  - Shock [Recovered/Resolved]
  - Fall [Unknown]

NARRATIVE: CASE EVENT DATE: 20140507
